FAERS Safety Report 5223709-9 (Version None)
Quarter: 2007Q1

REPORT INFORMATION
  Report Type: 
  Country: None (occurrence: None)
  Receive Date: 20070126
  Receipt Date: 20070110
  Transmission Date: 20070707
  Serious: Yes (Life-Threatening, Hospitalization)
  Sender: FDA-Public Use
  Company Number: 2006BI010391

PATIENT
  Age: 55 Year
  Sex: Female
  Weight: 47 kg

DRUGS (9)
  1. ZEVALIN [Suspect]
     Indication: BONE MARROW CONDITIONING REGIMEN
     Dosage: 924 MBQ;1X;IV
     Route: 042
     Dates: start: 20060511, end: 20060511
  2. ZEVALIN [Suspect]
  3. RITUXIMAB [Concomitant]
  4. CARMUSTINE [Concomitant]
  5. ETOPOSIDE [Concomitant]
  6. ARACYTIN [Concomitant]
  7. MELPHALAN [Concomitant]
  8. BACTRIM [Concomitant]
  9. ZELITREX [Concomitant]

REACTIONS (3)
  - CLOSTRIDIAL INFECTION [None]
  - GASTROINTESTINAL INFECTION [None]
  - MALNUTRITION [None]
